FAERS Safety Report 19350178 (Version 1)
Quarter: 2021Q2

REPORT INFORMATION
  Report Type: Spontaneous
  Country: US (occurrence: US)
  Receive Date: 20210601
  Receipt Date: 20210601
  Transmission Date: 20210717
  Serious: No
  Sender: FDA-Public Use
  Company Number: None

PATIENT
  Age: 78 Year
  Sex: Male

DRUGS (1)
  1. IODIXANOL (IODIXANOL 320MG/ML INJ) [Suspect]
     Active Substance: IODIXANOL
     Indication: ANGIOGRAM
     Route: 042
     Dates: start: 20210114, end: 20210114

REACTIONS (6)
  - Fluid overload [None]
  - Renal tubular necrosis [None]
  - Nephropathy toxic [None]
  - Dyspnoea [None]
  - Haemodialysis [None]
  - Acute kidney injury [None]

NARRATIVE: CASE EVENT DATE: 20210116
